FAERS Safety Report 9777502 (Version 1)
Quarter: 2013Q4

REPORT INFORMATION
  Report Type: Spontaneous
  Country: US (occurrence: US)
  Receive Date: 20131222
  Receipt Date: 20131222
  Transmission Date: 20140711
  Serious: No
  Sender: FDA-Public Use
  Company Number: US-009507513-1312USA005371

PATIENT
  Sex: Female

DRUGS (1)
  1. IMPLANON [Suspect]
     Indication: CONTRACEPTION

REACTIONS (2)
  - Device difficult to use [Unknown]
  - Device deployment issue [Unknown]
